FAERS Safety Report 7549630-9 (Version None)
Quarter: 2011Q2

REPORT INFORMATION
  Report Type: 
  Country: None (occurrence: None)
  Receive Date: 20110615
  Receipt Date: 20110606
  Transmission Date: 20111010
  Serious: No
  Sender: FDA-Public Use
  Company Number: FR-JNJFOC-20110603477

PATIENT
  Age: 37 Year
  Sex: Male

DRUGS (5)
  1. MORPHINE SULFATE [Concomitant]
  2. TRAMADOL HCL [Concomitant]
     Route: 065
  3. ACETAMINOPHEN [Concomitant]
  4. DURAGESIC-100 [Suspect]
     Indication: BACK PAIN
     Route: 062
  5. DURAGESIC-100 [Suspect]
     Route: 062

REACTIONS (2)
  - WRONG TECHNIQUE IN DRUG USAGE PROCESS [None]
  - PRODUCT ADHESION ISSUE [None]
